FAERS Safety Report 15636156 (Version 1)
Quarter: 2018Q4

REPORT INFORMATION
  Report Type: Spontaneous
  Country: US (occurrence: US)
  Receive Date: 20181120
  Receipt Date: 20181120
  Transmission Date: 20190205
  Serious: No
  Sender: FDA-Public Use
  Company Number: US-009507513-1810USA010371

PATIENT
  Sex: Female

DRUGS (1)
  1. DULERA [Suspect]
     Active Substance: FORMOTEROL FUMARATE DIHYDRATE\MOMETASONE FUROATE
     Indication: SEASONAL ALLERGY
     Dosage: UNK, AS NEEDED
     Route: 055

REACTIONS (2)
  - Product use in unapproved indication [Unknown]
  - No adverse event [Unknown]
